FAERS Safety Report 23305161 (Version 1)
Quarter: 2023Q4

REPORT INFORMATION
  Report Type: Spontaneous
  Country: US (occurrence: US)
  Receive Date: 20231218
  Receipt Date: 20231218
  Transmission Date: 20240109
  Serious: Yes (Other)
  Sender: FDA-Public Use
  Company Number: US-ASTELLAS-2023EU005173

PATIENT
  Sex: Male

DRUGS (9)
  1. IBRUTINIB [Suspect]
     Active Substance: IBRUTINIB
     Indication: Mantle cell lymphoma refractory
     Route: 048
  2. VENETOCLAX [Suspect]
     Active Substance: VENETOCLAX
     Indication: Mantle cell lymphoma refractory
     Route: 065
  3. VENETOCLAX [Suspect]
     Active Substance: VENETOCLAX
     Indication: Mantle cell lymphoma refractory
     Dosage: IN CYCLES 2-6, STUDY DESIGN PLANNED OF VEN DOSING FOR 5, 7, OR 10 DAYS AT DL1, DL2,DL3, RES.
     Route: 065
  4. VENETOCLAX [Suspect]
     Active Substance: VENETOCLAX
     Indication: Mantle cell lymphoma refractory
     Dosage: 50 MG, ONCE DAILY IN WEEK 2 DURING CYCLE 2
     Route: 065
  5. VENETOCLAX [Suspect]
     Active Substance: VENETOCLAX
     Indication: Mantle cell lymphoma refractory
     Dosage: 100 MG, ONCE DAILY IN WEEK 3 DURING CYCLE 1
     Route: 065
  6. VENETOCLAX [Suspect]
     Active Substance: VENETOCLAX
     Indication: Mantle cell lymphoma refractory
     Dosage: 200 MG, ONCE DAILY IN WEEK 4 DURING CYCLE 1
     Route: 065
  7. VENETOCLAX [Suspect]
     Active Substance: VENETOCLAX
     Indication: Mantle cell lymphoma refractory
     Dosage: 20 MG, ONCE DAILY IN WEEK 1 DURING CYCLE 1
     Route: 065
  8. RITUXIMAB [Suspect]
     Active Substance: RITUXIMAB
     Indication: Mantle cell lymphoma refractory
     Dosage: 375 MG/M2, CYCLIC, ON DAY 1 OF EACH 28 DAY CYCLE
     Route: 065
  9. BENDAMUSTINE HYDROCHLORIDE [Suspect]
     Active Substance: BENDAMUSTINE HYDROCHLORIDE
     Indication: Mantle cell lymphoma refractory
     Dosage: 70 MG/M2, CYCLIC, ADMINISTERED ON DAYS 1 AND 2 OF EACH CYCLE
     Route: 042

REACTIONS (1)
  - Rash maculo-papular [Unknown]
